FAERS Safety Report 6019080-5 (Version None)
Quarter: 2008Q4

REPORT INFORMATION
  Report Type: 
  Country: None (occurrence: None)
  Receive Date: 20081224
  Receipt Date: 20081216
  Transmission Date: 20090506
  Serious: Yes (Hospitalization, Other)
  Sender: FDA-Public Use
  Company Number: JP-PFIZER INC-2008100879

PATIENT

DRUGS (7)
  1. SUNITINIB MALATE [Suspect]
     Indication: RENAL CELL CARCINOMA
     Dosage: 50 MG, 1X/DAY
     Route: 048
     Dates: start: 20080825
  2. OXYCONTIN [Concomitant]
     Route: 048
     Dates: start: 20080825
  3. OMEPRAL [Concomitant]
     Route: 048
  4. GASLON [Concomitant]
     Route: 048
  5. MAGNESIUM OXIDE [Concomitant]
     Route: 048
  6. VOLTAREN [Concomitant]
     Dates: start: 20080905, end: 20080906
  7. ADALAT [Concomitant]
     Route: 048
     Dates: start: 20080902

REACTIONS (4)
  - HEPATIC FUNCTION ABNORMAL [None]
  - ORGANISING PNEUMONIA [None]
  - PLATELET COUNT DECREASED [None]
  - WHITE BLOOD CELL COUNT DECREASED [None]
